FAERS Safety Report 24562714 (Version 1)
Quarter: 2024Q4

REPORT INFORMATION
  Report Type: Report from Study
  Country: US (occurrence: US)
  Receive Date: 20241029
  Receipt Date: 20241029
  Transmission Date: 20250114
  Serious: Yes (Other)
  Sender: ABBVIE
  Company Number: US-ABBVIE-5981712

PATIENT
  Sex: Female

DRUGS (1)
  1. CREON [Suspect]
     Active Substance: PANCRELIPASE AMYLASE\PANCRELIPASE LIPASE\PANCRELIPASE PROTEASE
     Indication: Product used for unknown indication
     Route: 048
     Dates: start: 200406

REACTIONS (4)
  - Pancreatic operation [Recovered/Resolved]
  - Knee operation [Recovered/Resolved]
  - White blood cell count abnormal [Not Recovered/Not Resolved]
  - Hysterectomy [Recovered/Resolved]
